FAERS Safety Report 7579515-3 (Version None)
Quarter: 2011Q2

REPORT INFORMATION
  Report Type: 
  Country: None (occurrence: None)
  Receive Date: 20110629
  Receipt Date: 20110616
  Transmission Date: 20111010
  Serious: Yes (Hospitalization)
  Sender: FDA-Public Use
  Company Number: CA-JNJFOC-20110608267

PATIENT
  Sex: Male

DRUGS (4)
  1. REMICADE [Suspect]
     Dosage: TOTAL OF 3 INFUSIONS
     Route: 042
     Dates: start: 20110425
  2. REMICADE [Suspect]
     Dosage: TOTAL OF 3 INFUSIONS
     Route: 042
     Dates: start: 20110425
  3. REMICADE [Suspect]
     Indication: ANKYLOSING SPONDYLITIS
     Route: 042
     Dates: start: 20110104
  4. REMICADE [Suspect]
     Indication: CROHN'S DISEASE
     Route: 042
     Dates: start: 20110104

REACTIONS (1)
  - HYDROCELE [None]
